FAERS Safety Report 9273400 (Version 1)
Quarter: 2013Q2

REPORT INFORMATION
  Report Type: Spontaneous
  Country: US (occurrence: US)
  Receive Date: 20130506
  Receipt Date: 20130506
  Transmission Date: 20140414
  Serious: No
  Sender: FDA-Public Use
  Company Number: US-AMGEN-USASP2013025947

PATIENT
  Age: 58 Year
  Sex: Female

DRUGS (5)
  1. ENBREL [Suspect]
     Indication: RHEUMATOID ARTHRITIS
     Dosage: 50 MG, QWK
     Dates: start: 20130317
  2. METHOTREXATE [Concomitant]
     Dosage: 7 TABLETS (2.5 MG EACH) ONCE A WEEK BY MOUTH
     Route: 048
     Dates: start: 2003, end: 2010
  3. LEFLUNOMIDE [Concomitant]
     Dosage: UNK UNK, BID
     Route: 048
     Dates: start: 20120904, end: 20121205
  4. SULFASALAZINE [Concomitant]
     Dosage: 6 TABLETS (500 MG EACH) A DAY BY MOUTH
     Route: 048
     Dates: start: 2010, end: 201209
  5. AZATHIOPRINE [Concomitant]
     Dosage: 50 MG, QWK
     Route: 048
     Dates: end: 2012

REACTIONS (2)
  - Alopecia [Not Recovered/Not Resolved]
  - Injection site rash [Not Recovered/Not Resolved]
